FAERS Safety Report 7543381-2 (Version None)
Quarter: 2011Q2

REPORT INFORMATION
  Report Type: 
  Country: None (occurrence: None)
  Receive Date: 20110613
  Receipt Date: 20110603
  Transmission Date: 20111010
  Serious: Yes (Hospitalization, Other)
  Sender: FDA-Public Use
  Company Number: US-ACTELION-A-US2011-44497

PATIENT

DRUGS (8)
  1. PREDNISONE [Concomitant]
  2. ALLOPURINOL [Concomitant]
  3. POTASSIUM CHLORIDE [Concomitant]
  4. AMIODARONE HCL [Concomitant]
  5. TRACLEER [Suspect]
     Dosage: 62.5 MG, BID
     Route: 048
     Dates: start: 20090928, end: 20091027
  6. TADALAFIL [Concomitant]
  7. TRACLEER [Suspect]
     Indication: PULMONARY ARTERIAL HYPERTENSION
     Dosage: 125 MG, BID
     Route: 048
     Dates: start: 20091028
  8. NEXIUM [Concomitant]

REACTIONS (7)
  - CARDIAC FAILURE CONGESTIVE [None]
  - CARDIAC DISORDER [None]
  - CONDITION AGGRAVATED [None]
  - PLEURAL EFFUSION [None]
  - PERICARDIAL EFFUSION [None]
  - PULMONARY ARTERIAL HYPERTENSION [None]
  - DYSPNOEA [None]
